FAERS Safety Report 6638268-3 (Version None)
Quarter: 2010Q1

REPORT INFORMATION
  Report Type: 
  Country: None (occurrence: None)
  Receive Date: 20100317
  Receipt Date: 20100302
  Transmission Date: 20100710
  Serious: Yes (Death, Hospitalization)
  Sender: FDA-Public Use
  Company Number: US-ROCHE-685815

PATIENT
  Sex: Female
  Weight: 37.6 kg

DRUGS (10)
  1. BEVACIZUMAB [Suspect]
     Route: 065
     Dates: start: 20100205
  2. ERLOTINIB [Suspect]
     Route: 048
     Dates: start: 20100205
  3. CALCIUM/VITAMIN D [Concomitant]
     Dosage: CLASS: HISTORICAL MED
     Route: 048
  4. CLEOCIN T [Concomitant]
     Indication: RASH
     Dosage: SIG-ROUTE: 1 % EX LOTN 1 TUBE 6, APPLY TO FACE AS NEEDED
     Route: 061
     Dates: start: 20100205
  5. HYDROCORTISONE [Concomitant]
     Indication: RASH
     Dosage: SIG-ROUTE: 1 % EX LOTN 1 TUBE 6, APPLY TO FACE ONCE A DAY
     Route: 061
     Dates: start: 20100205
  6. MEGACE [Concomitant]
     Dosage: CLASS: HISTORICAL MED, DOSE: 40 MG/ML TWICE A DAY
     Route: 048
  7. MINOCYCLINE HCL [Concomitant]
     Dosage: DRUG NAME: MINOCYCLINE HCL 100 MG OR CAPS 28
     Route: 048
     Dates: start: 20100205
  8. PERCOCET [Concomitant]
     Indication: PAIN
     Dosage: CLASS: HISTORICAL MED, FREQUENCY: PRN FOR PAIN
     Route: 048
  9. PROAIR HFA [Concomitant]
     Dosage: DRUG: PROAIR HFA 108 (90 BASE) MCG/ACT IN AERS 1 INHALER 4, ROUTE: 2 PUFFS EVERY 4-6 HOURS AS NEEDED
     Route: 055
     Dates: start: 20100205
  10. VITAMIN D [Concomitant]
     Dosage: DRUG: VITAMIN D 1000 UNIT OR TABS, CLASS: HISTORICAL MED
     Route: 048

REACTIONS (4)
  - DISEASE PROGRESSION [None]
  - DYSPNOEA [None]
  - PLEURAL EFFUSION [None]
  - PNEUMONIA [None]
